FAERS Safety Report 5234586-4 (Version None)
Quarter: 2007Q1

REPORT INFORMATION
  Report Type: 
  Country: None (occurrence: None)
  Receive Date: 20070209
  Receipt Date: 20070205
  Transmission Date: 20070707
  Serious: Yes (Death, Other)
  Sender: FDA-Public Use
  Company Number: PHEH2005US10682

PATIENT
  Sex: Female
  Weight: 53.514 kg

DRUGS (9)
  1. ADRIAMYCIN PFS [Concomitant]
     Indication: BREAST CANCER
     Dosage: 100 MG, UNK
     Dates: start: 19970101
  2. CYTOXAN [Concomitant]
     Dosage: 1000 MG, UNK
     Dates: start: 19970101
  3. CYCLOPHOSPHAMIDE + 5-FU + METHOTREXATE [Concomitant]
  4. TAXOL [Concomitant]
  5. RADIATION [Concomitant]
     Dates: start: 19980709, end: 19980929
  6. TAMOXIFEN CITRATE [Concomitant]
     Indication: BREAST CANCER
     Dosage: 10 MG, BID
     Dates: end: 20030601
  7. ATENOLOL [Concomitant]
  8. DIOVAN [Concomitant]
  9. ZOMETA [Suspect]

REACTIONS (11)
  - ANORECTAL DISORDER [None]
  - ARTERIOSCLEROSIS [None]
  - ARTHRALGIA [None]
  - BONE SCAN ABNORMAL [None]
  - DEATH [None]
  - DIVERTICULUM [None]
  - GLOSSODYNIA [None]
  - HEPATIC STEATOSIS [None]
  - MYALGIA [None]
  - OSTEONECROSIS [None]
  - TONGUE DISCOLOURATION [None]
